FAERS Safety Report 18867581 (Version 3)
Quarter: 2021Q3

REPORT INFORMATION
  Report Type: Report from Study
  Country: DE (occurrence: DE)
  Receive Date: 20210209
  Receipt Date: 20210803
  Transmission Date: 20211014
  Serious: Yes (Hospitalization)
  Sender: FDA-Public Use
  Company Number: DE-MYLANLABS-2021M1007334

PATIENT
  Age: 74 Year
  Sex: Female

DRUGS (10)
  1. PRAMIPEXOLE. [Suspect]
     Active Substance: PRAMIPEXOLE
     Indication: PARKINSON^S DISEASE
     Dosage: 1.04 MILLIGRAM, QD (1.04 MG, OD)
     Route: 048
     Dates: start: 2004, end: 20201121
  2. XADAGO [Suspect]
     Active Substance: SAFINAMIDE MESYLATE
     Indication: PARKINSON^S DISEASE
     Dosage: 50 MILLIGRAM, QD (50 MG, OD)
     Route: 048
     Dates: start: 20200123, end: 20201121
  3. ISICOM [Concomitant]
     Active Substance: CARBIDOPA\LEVODOPA
     Dosage: 3 DOSAGE FORM, .5 DF, 6/DAY
     Route: 048
     Dates: start: 2017, end: 202011
  4. XADAGO [Suspect]
     Active Substance: SAFINAMIDE MESYLATE
     Dosage: 50 MG, OD
     Route: 048
     Dates: start: 20201210
  5. ISICOM [Concomitant]
     Active Substance: CARBIDOPA\LEVODOPA
     Dosage: 1 DOSAGE FORM (1 DF, OD)
     Route: 048
  6. PK MERZ [Interacting]
     Active Substance: AMANTADINE SULFATE
     Indication: PARKINSON^S DISEASE
     Dosage: 200 MILLIGRAM, QD (100 MG, BID)
     Route: 048
     Dates: start: 2004, end: 20201121
  7. PK MERZ [Interacting]
     Active Substance: AMANTADINE SULFATE
     Dosage: 100 MILLIGRAM, QD
     Route: 048
     Dates: start: 20201210
  8. CLARIUM                            /00397201/ [Suspect]
     Active Substance: PIRIBEDIL
     Indication: PARKINSON^S DISEASE
     Dosage: 100 MILLIGRAM, BID (50 MG, BID )
     Route: 048
     Dates: start: 2004
  9. CLARIUM                            /00397201/ [Suspect]
     Active Substance: PIRIBEDIL
     Dosage: 50 MILLIGRAM, QD (50 MG, OD)
     Route: 048
     Dates: start: 20201119
  10. PREGABALINE [Concomitant]
     Active Substance: PREGABALIN
     Indication: NEURALGIA
     Dosage: 25 MILLIGRAM, (25 MG, OD)
     Route: 048
     Dates: start: 20200122

REACTIONS (4)
  - Labelled drug-drug interaction medication error [Unknown]
  - Fall [Recovered/Resolved]
  - Hallucination, visual [Recovering/Resolving]
  - Dyskinesia [Not Recovered/Not Resolved]

NARRATIVE: CASE EVENT DATE: 20200123
